FAERS Safety Report 8676197 (Version 2)
Quarter: 2013Q4

REPORT INFORMATION
  Report Type: Spontaneous
  Country: US (occurrence: US)
  Receive Date: 20120720
  Receipt Date: 20131101
  Transmission Date: 20140711
  Serious: No
  Sender: FDA-Public Use
  Company Number: US-009507513-1206USA04179

PATIENT
  Age: 85 Year
  Sex: Male

DRUGS (1)
  1. COSOPT [Suspect]
     Dosage: 2 GTT, BID
     Route: 047
     Dates: start: 2010

REACTIONS (2)
  - Headache [Not Recovered/Not Resolved]
  - Therapeutic response unexpected [Unknown]
